FAERS Safety Report 10415382 (Version 5)
Quarter: 2014Q4

REPORT INFORMATION
  Report Type: Report from Study
  Country: GB (occurrence: GB)
  Receive Date: 20140828
  Receipt Date: 20141111
  Transmission Date: 20150528
  Serious: Yes (Hospitalization)
  Sender: FDA-Public Use
  Company Number: GB-NOVOPROD-417854

PATIENT
  Age: 34 Year
  Sex: Female
  Weight: 72 kg

DRUGS (25)
  1. INSULIN DETEMIR 2.4 MMOL/L [Suspect]
     Active Substance: INSULIN DETEMIR
     Dosage: 19 U, QD
     Route: 058
     Dates: start: 20140513, end: 20140701
  2. NOVORAPID [Suspect]
     Active Substance: INSULIN ASPART
     Indication: TYPE 1 DIABETES MELLITUS
     Dosage: 34 U, QD
     Route: 058
     Dates: start: 2008, end: 20140701
  3. NOVORAPID [Suspect]
     Active Substance: INSULIN ASPART
     Dosage: 36 U, QD
     Route: 058
     Dates: start: 20140806
  4. INSULIN DETEMIR 2.4 MMOL/L [Suspect]
     Active Substance: INSULIN DETEMIR
     Dosage: 18 U, QD
     Route: 058
     Dates: start: 20140702, end: 20140811
  5. NOVORAPID [Suspect]
     Active Substance: INSULIN ASPART
     Dosage: 58 U, QD
     Route: 058
     Dates: end: 20140826
  6. NOVORAPID [Suspect]
     Active Substance: INSULIN ASPART
     Dosage: 36 U, QD
     Route: 058
     Dates: start: 20140816
  7. NOVORAPID [Suspect]
     Active Substance: INSULIN ASPART
     Dosage: 42 U, QD
     Route: 058
     Dates: start: 20140829
  8. CEPHRADINE [Concomitant]
     Active Substance: CEPHRADINE
     Dosage: UNK
     Dates: start: 2014
  9. ASPIRIN. [Concomitant]
     Active Substance: ASPIRIN
     Dosage: UNK
     Dates: start: 20140815, end: 20140815
  10. INSULIN DETEMIR 2.4 MMOL/L [Suspect]
     Active Substance: INSULIN DETEMIR
     Dosage: 12 U, QD
     Route: 058
     Dates: start: 20110427, end: 20140805
  11. INSULIN DETEMIR 2.4 MMOL/L [Suspect]
     Active Substance: INSULIN DETEMIR
     Dosage: 58 U, QD
     Route: 058
     Dates: end: 20140826
  12. INSULIN DETEMIR 2.4 MMOL/L [Suspect]
     Active Substance: INSULIN DETEMIR
     Dosage: 42 U, QD
     Route: 058
     Dates: start: 20140829
  13. NOVORAPID [Suspect]
     Active Substance: INSULIN ASPART
     Dosage: 36 U, QD
     Route: 058
     Dates: start: 20140702, end: 20140829
  14. INSULIN DETEMIR 2.4 MMOL/L [Suspect]
     Active Substance: INSULIN DETEMIR
     Dosage: 12 U, QD
     Route: 058
     Dates: start: 20140806
  15. INSULIN DETEMIR 2.4 MMOL/L [Suspect]
     Active Substance: INSULIN DETEMIR
     Dosage: 22 U, QD
     Route: 058
     Dates: start: 20140812, end: 20140829
  16. TRAMADOL [Concomitant]
     Active Substance: TRAMADOL
     Dosage: UNK
     Dates: start: 2014
  17. NOVORAPID [Suspect]
     Active Substance: INSULIN ASPART
     Dosage: 36 U, QD
     Route: 058
     Dates: start: 20110427, end: 20140805
  18. INSULIN DETEMIR 2.4 MMOL/L [Suspect]
     Active Substance: INSULIN DETEMIR
     Dosage: 12 U, QD
     Route: 058
     Dates: start: 20140816
  19. NOVORAPID [Suspect]
     Active Substance: INSULIN ASPART
     Dosage: 30 U, QD
     Route: 058
     Dates: start: 20140830
  20. FOLIC ACID. [Concomitant]
     Active Substance: FOLIC ACID
     Indication: PROPHYLAXIS
     Dosage: UNK
     Dates: start: 2014
  21. CITALOPRAM [Concomitant]
     Active Substance: CITALOPRAM HYDROBROMIDE
     Dosage: UNK
     Dates: start: 2014
  22. OMEPRAZOLE. [Concomitant]
     Active Substance: OMEPRAZOLE
     Indication: PROPHYLAXIS
     Dosage: UNK
     Dates: start: 20140812
  23. INSULIN DETEMIR 2.4 MMOL/L [Suspect]
     Active Substance: INSULIN DETEMIR
     Indication: TYPE 1 DIABETES MELLITUS
     Dosage: 12 U, QD
     Route: 058
     Dates: start: 2008, end: 20140513
  24. INSULIN DETEMIR 2.4 MMOL/L [Suspect]
     Active Substance: INSULIN DETEMIR
     Dosage: 12 U, QD
     Route: 058
     Dates: start: 20110427
  25. INSULIN DETEMIR 2.4 MMOL/L [Suspect]
     Active Substance: INSULIN DETEMIR
     Dosage: 12 U, QD
     Route: 058
     Dates: start: 20140830

REACTIONS (8)
  - Vomiting [Recovered/Resolved]
  - Premature delivery [Recovered/Resolved]
  - Diabetic ketoacidosis [Recovered/Resolved]
  - Vomiting [Recovered/Resolved]
  - Vitreous haemorrhage [Recovering/Resolving]
  - Urine analysis abnormal [Recovered/Resolved]
  - Neovascularisation [Unknown]
  - Exposure during pregnancy [Recovered/Resolved]

NARRATIVE: CASE EVENT DATE: 20140121
